FAERS Safety Report 16149924 (Version 2)
Quarter: 2019Q2

REPORT INFORMATION
  Report Type: Spontaneous
  Country: PT (occurrence: PT)
  Receive Date: 20190402
  Receipt Date: 20190423
  Transmission Date: 20190711
  Serious: Yes (Hospitalization)
  Sender: FDA-Public Use
  Company Number: PT-BAUSCH-BL-2019-009687

PATIENT
  Age: 14 Year
  Sex: Male

DRUGS (2)
  1. THIOCOLCHICOSIDE [Suspect]
     Active Substance: THIOCOLCHICOSIDE
     Indication: BACK PAIN
     Dosage: 12 HOURS PRIOR TO ADMISSION
     Route: 048
  2. DICLOFENAC [Suspect]
     Active Substance: DICLOFENAC
     Indication: BACK PAIN
     Dosage: 12 HOURS PRIOR TO ADMISSION
     Route: 048

REACTIONS (1)
  - Dystonia [Unknown]
